FAERS Safety Report 14331889 (Version 8)
Quarter: 2019Q4

REPORT INFORMATION
  Report Type: Report from Study
  Country: FR (occurrence: FR)
  Receive Date: 20171228
  Receipt Date: 20191015
  Transmission Date: 20200122
  Serious: Yes (Death, Life-Threatening, Hospitalization, Other)
  Sender: FDA-Public Use
  Company Number: FR-JNJFOC-20171233818

PATIENT
  Age: 59 Year
  Sex: Male
  Weight: 97 kg

DRUGS (2)
  1. STREPTOZOCINE [Suspect]
     Active Substance: STREPTOZOCIN
     Indication: CHEMOTHERAPY
     Route: 065
     Dates: start: 20151228, end: 20160118
  2. DOXORUBICIN HYDROCHLORIDE. [Suspect]
     Active Substance: DOXORUBICIN HYDROCHLORIDE
     Indication: CHEMOTHERAPY
     Route: 065
     Dates: start: 20151228, end: 20160118

REACTIONS (4)
  - Thrombocytopenia [Unknown]
  - Leukopenia [Unknown]
  - Acute kidney injury [Fatal]
  - Anaemia [Unknown]

NARRATIVE: CASE EVENT DATE: 20160103
